FAERS Safety Report 8797747 (Version 1)
Quarter: 2012Q4

REPORT INFORMATION
  Report Type: 
  Country: GB (occurrence: GB)
  Receive Date: 20120920
  Receipt Date: 20120920
  Transmission Date: 20130627
  Serious: Yes (Other)
  Sender: FDA-Public Use
  Company Number: GB-009507513-1209GBR007593

PATIENT
  Sex: Male

DRUGS (1)
  1. ALENDRONATE SODIUM\CHOLECALCIFEROL [Suspect]
     Indication: STEROID THERAPY
     Route: 048

REACTIONS (1)
  - Wrist fracture [Unknown]
